FAERS Safety Report 5246098-2 (Version None)
Quarter: 2007Q1

REPORT INFORMATION
  Report Type: 
  Country: None (occurrence: None)
  Receive Date: 20061201
  Receipt Date: 20060724
  Transmission Date: 20070707
  Serious: No
  Sender: FDA-Public Use
  Company Number: 2006PV018126

PATIENT
  Age: 56 Year
  Sex: Female
  Weight: 110.6777 kg

DRUGS (10)
  1. BYETTA [Suspect]
     Indication: DIABETES MELLITUS NON-INSULIN-DEPENDENT
     Dosage: SEE IMAGE
     Route: 058
     Dates: start: 20060401, end: 20060101
  2. BYETTA [Suspect]
     Indication: DIABETES MELLITUS NON-INSULIN-DEPENDENT
     Dosage: SEE IMAGE
     Route: 058
     Dates: start: 20060101
  3. GLYBURIDE [Concomitant]
  4. LANTUS [Concomitant]
  5. NEXIUM [Concomitant]
  6. BIDIL [Concomitant]
  7. DIOVAN [Concomitant]
  8. INNOPRAN XL [Concomitant]
  9. NORVASC [Concomitant]
  10. GLUCOPHAGE [Concomitant]

REACTIONS (6)
  - GASTROOESOPHAGEAL REFLUX DISEASE [None]
  - GINGIVAL SWELLING [None]
  - OEDEMA PERIPHERAL [None]
  - SCRATCH [None]
  - WEIGHT DECREASED [None]
  - WOUND INFECTION [None]
